FAERS Safety Report 22138346 (Version 3)
Quarter: 2023Q2

REPORT INFORMATION
  Report Type: Spontaneous
  Country: FR (occurrence: FR)
  Receive Date: 20230326
  Receipt Date: 20230609
  Transmission Date: 20230722
  Serious: Yes (Death, Other)
  Sender: FDA-Public Use
  Company Number: FR-ALXN-A202303581

PATIENT
  Sex: Female

DRUGS (1)
  1. STRENSIQ [Suspect]
     Active Substance: ASFOTASE ALFA
     Indication: Hypophosphatasia
     Dosage: 2 MG/KG, TIW
     Route: 065
     Dates: start: 20230116, end: 20230317

REACTIONS (4)
  - Hypophosphatasia [Fatal]
  - Condition aggravated [Fatal]
  - Respiratory failure [Fatal]
  - Central nervous system lesion [Fatal]
